FAERS Safety Report 18412424 (Version 1)
Quarter: 2020Q4

REPORT INFORMATION
  Report Type: Spontaneous
  Country: US (occurrence: US)
  Receive Date: 20201022
  Receipt Date: 20201022
  Transmission Date: 20210114
  Serious: Yes (Hospitalization, Other)
  Sender: FDA-Public Use
  Company Number: US-BIOVITRUM-2020US5517

PATIENT
  Age: 22 Year
  Sex: Female

DRUGS (1)
  1. ANAKINRA [Suspect]
     Active Substance: ANAKINRA
     Indication: STILL^S DISEASE
     Route: 058

REACTIONS (4)
  - Haemophagocytic lymphohistiocytosis [Unknown]
  - Splenomegaly [Recovering/Resolving]
  - Serum ferritin increased [Unknown]
  - Off label use [Unknown]
